FAERS Safety Report 18575474 (Version 1)
Quarter: 2020Q4

REPORT INFORMATION
  Report Type: Spontaneous
  Country: CN (occurrence: CN)
  Receive Date: 20201203
  Receipt Date: 20201203
  Transmission Date: 20210114
  Serious: Yes (Hospitalization)
  Sender: FDA-Public Use
  Company Number: CN-GLAXOSMITHKLINE-CN2020APC233878

PATIENT
  Age: 52 Year
  Sex: Male
  Weight: 48 kg

DRUGS (2)
  1. SALBUTAMOL SULPHATE TABLET (GENERIC) (ALBUTEROL SULFATE) [Suspect]
     Active Substance: ALBUTEROL
     Indication: BRONCHIECTASIS
     Dosage: 2 DF, QD
     Route: 048
     Dates: start: 20201012, end: 20201027
  2. SALBUTAMOL [Suspect]
     Active Substance: ALBUTEROL
     Indication: BRONCHIECTASIS
     Dosage: 5 MG, TID
     Route: 048
     Dates: start: 20201028, end: 20201103

REACTIONS (2)
  - Drug intolerance [Unknown]
  - Tremor [Recovering/Resolving]

NARRATIVE: CASE EVENT DATE: 20201102
